FAERS Safety Report 18896234 (Version 1)
Quarter: 2021Q1

REPORT INFORMATION
  Report Type: Spontaneous
  Country: US (occurrence: US)
  Receive Date: 20210216
  Receipt Date: 20210216
  Transmission Date: 20210420
  Serious: Yes (Other)
  Sender: FDA-Public Use
  Company Number: US-CIPLA LTD.-2021US01000

PATIENT

DRUGS (2)
  1. SALBUTAMOL [Suspect]
     Active Substance: ALBUTEROL
     Dosage: 2?4 PUFFS A DAY, UNK
     Dates: start: 202012
  2. SALBUTAMOL [Suspect]
     Active Substance: ALBUTEROL
     Indication: ASTHMA
     Dosage: UNK, PRN (WHENEVER REQUIRED)

REACTIONS (5)
  - Device ineffective [Unknown]
  - Asthma [Not Recovered/Not Resolved]
  - Speech disorder [Recovering/Resolving]
  - Cough [Recovering/Resolving]
  - Device delivery system issue [Unknown]

NARRATIVE: CASE EVENT DATE: 20201222
